FAERS Safety Report 24972191 (Version 2)
Quarter: 2025Q1

REPORT INFORMATION
  Report Type: Spontaneous
  Country: CN (occurrence: CN)
  Receive Date: 20250214
  Receipt Date: 20250218
  Transmission Date: 20250408
  Serious: Yes (Life-Threatening, Hospitalization, Other)
  Sender: SANOFI AVENTIS
  Company Number: CN-MLMSERVICE-20250203-PI388779-00249-1

PATIENT
  Age: 65 Year
  Sex: Male

DRUGS (6)
  1. OXALIPLATIN [Suspect]
     Active Substance: OXALIPLATIN
     Indication: Angiocentric lymphoma
     Dosage: 170 MG, QD, ON THE DAY 1, EVERY 3 WEEKS (3 CYCLE)
     Dates: start: 202204, end: 2022
  2. OXALIPLATIN [Suspect]
     Active Substance: OXALIPLATIN
     Dosage: 50 MG, QD, ON THE DAY 1 OF FOURTH CYCLE; APPROXIMATELY 50 MG
     Dates: start: 202207
  3. GEMCITABINE [Concomitant]
     Active Substance: GEMCITABINE
     Indication: Angiocentric lymphoma
     Dosage: 1800 MG, QD, ON THE DAY 1, EVERY 3 WEEKS
     Dates: start: 202204
  4. TORIPALIMAB [Concomitant]
     Active Substance: TORIPALIMAB
     Indication: Angiocentric lymphoma
     Dosage: 240 MG, QD, ON THE DAY 0, EVERY 3 WEEKS
     Dates: start: 202204
  5. PEGASPARGASE [Concomitant]
     Active Substance: PEGASPARGASE
     Indication: Angiocentric lymphoma
     Dosage: 3750 IU, QD, ON THE DAY 1, EVERY 3 WEEKS
     Dates: start: 202204
  6. PEGASPARGASE [Concomitant]
     Active Substance: PEGASPARGASE
     Dosage: 3750 IU, QD
     Dates: start: 20220727

REACTIONS (12)
  - Infusion related hypersensitivity reaction [Recovered/Resolved]
  - Cytokine release syndrome [Recovered/Resolved]
  - Pleural effusion [Recovered/Resolved]
  - Hypokalaemia [Recovered/Resolved]
  - Sinus tachycardia [Recovered/Resolved]
  - Chills [Recovered/Resolved]
  - Dyspnoea [Recovered/Resolved]
  - Chest pain [Recovered/Resolved]
  - Hyperpyrexia [Recovered/Resolved]
  - Tachypnoea [Recovered/Resolved]
  - Hypoxia [Recovered/Resolved]
  - Hypotension [Recovered/Resolved]

NARRATIVE: CASE EVENT DATE: 20220701
